FAERS Safety Report 5480336-6 (Version None)
Quarter: 2007Q4

REPORT INFORMATION
  Report Type: 
  Country: None (occurrence: None)
  Receive Date: 20071009
  Receipt Date: 20070928
  Transmission Date: 20080405
  Serious: Yes (Hospitalization)
  Sender: FDA-Public Use
  Company Number: BE-AMGEN-UK245523

PATIENT
  Sex: Female

DRUGS (4)
  1. PANITUMUMAB [Suspect]
     Indication: COLORECTAL CANCER
     Route: 041
     Dates: start: 20061012, end: 20070913
  2. IRINOTECAN HCL [Concomitant]
     Route: 041
     Dates: start: 20061012
  3. LEUCOVORIN [Concomitant]
     Route: 041
     Dates: start: 20061012
  4. FLUOROURACIL [Concomitant]
     Route: 041
     Dates: start: 20061012

REACTIONS (2)
  - ANAL ULCER [None]
  - ERYTHEMA [None]
